FAERS Safety Report 5040381-1 (Version None)
Quarter: 2006Q2

REPORT INFORMATION
  Report Type: 
  Country: None (occurrence: None)
  Receive Date: 20060630
  Receipt Date: 20060220
  Transmission Date: 20061013
  Serious: Yes (Hospitalization, Other)
  Sender: FDA-Public Use
  Company Number: PHBS2006JP02908

PATIENT
  Age: 72 Year
  Sex: Female

DRUGS (7)
  1. VOLTAREN [Suspect]
     Indication: PAIN
     Dosage: 112.5 MG/DAY
     Route: 048
     Dates: start: 20060215, end: 20060216
  2. VALTREX [Suspect]
     Indication: HERPES ZOSTER
     Dosage: 3000 MG/DAY
     Route: 048
     Dates: start: 20060215, end: 20060216
  3. SELBEX [Concomitant]
     Indication: HERPES ZOSTER
     Dosage: 3 DF/DAY
     Route: 048
     Dates: start: 20060215, end: 20060216
  4. ASPIRIN [Concomitant]
     Route: 048
  5. NORVASC [Concomitant]
     Route: 048
  6. MUCOSTA [Concomitant]
     Route: 048
  7. MEVALOTIN [Concomitant]
     Route: 048

REACTIONS (12)
  - BLOOD CREATININE INCREASED [None]
  - BLOOD UREA INCREASED [None]
  - DEPRESSED LEVEL OF CONSCIOUSNESS [None]
  - DRUG LEVEL ABOVE THERAPEUTIC [None]
  - HAEMODIALYSIS [None]
  - HALLUCINATION, VISUAL [None]
  - NAUSEA [None]
  - NERVOUS SYSTEM DISORDER [None]
  - RASH [None]
  - RENAL FAILURE ACUTE [None]
  - URINE OUTPUT DECREASED [None]
  - VOMITING [None]
